FAERS Safety Report 9639749 (Version 1)
Quarter: 2013Q4

REPORT INFORMATION
  Report Type: Spontaneous
  Country: US (occurrence: None)
  Receive Date: 20131021
  Receipt Date: 20131021
  Transmission Date: 20140711
  Serious: No
  Sender: FDA-Public Use
  Company Number: None

PATIENT
  Age: 34 Year
  Sex: Female
  Weight: 76.2 kg

DRUGS (1)
  1. MINASTRIN 24 1MG/20MCG WARNER CHILCOTT [Suspect]
     Indication: ORAL CONTRACEPTION
     Route: 048
     Dates: start: 20130908, end: 20131018

REACTIONS (4)
  - Breast tenderness [None]
  - Metrorrhagia [None]
  - Blood oestrogen increased [None]
  - Weight increased [None]
